FAERS Safety Report 15132146 (Version 1)
Quarter: 2018Q4

REPORT INFORMATION
  Report Type: Spontaneous
  Country: US (occurrence: US)
  Receive Date: 20180711
  Receipt Date: 20180711
  Transmission Date: 20190204
  Serious: No
  Sender: FDA-Public Use
  Company Number: US-CEDIPROF, INC.-2051817

PATIENT

DRUGS (6)
  1. PROBIOTIC (BIFIDOBACTERIUM LACTIS) [Concomitant]
     Active Substance: BIFIDOBACTERIUM ANIMALIS LACTIS
     Dates: start: 2012
  2. LEVO-T [Suspect]
     Active Substance: LEVOTHYROXINE SODIUM
  3. VIITAMIN D3 (COLECALCIFEROL) [Concomitant]
     Dates: start: 2012
  4. CALCIUM ACETATE. [Concomitant]
     Active Substance: CALCIUM ACETATE
     Dates: start: 2012
  5. WARFARIN SODIUM. [Concomitant]
     Active Substance: WARFARIN SODIUM
  6. COENZYMS Q10 (UBIDECARENONE) [Concomitant]
     Dates: end: 2017

REACTIONS (3)
  - Pruritus [Not Recovered/Not Resolved]
  - Lymphoedema [Not Recovered/Not Resolved]
  - Fatigue [Not Recovered/Not Resolved]

NARRATIVE: CASE EVENT DATE: 2016
